FAERS Safety Report 8119983-1 (Version None)
Quarter: 2012Q1

REPORT INFORMATION
  Report Type: 
  Country: None (occurrence: None)
  Receive Date: 20120207
  Receipt Date: 20111113
  Transmission Date: 20120608
  Serious: No
  Sender: FDA-Public Use
  Company Number: US-ABBOTT-11P-163-0863811-00

PATIENT
  Age: 51 Year
  Sex: Female

DRUGS (2)
  1. HUMIRA [Suspect]
     Indication: COLITIS ULCERATIVE
     Dates: start: 20110928, end: 20110928
  2. HUMIRA [Suspect]
     Dosage: LOADING DOSE

REACTIONS (7)
  - NASOPHARYNGITIS [None]
  - URINARY TRACT INFECTION [None]
  - COUGH [None]
  - MOBILITY DECREASED [None]
  - LICE INFESTATION [None]
  - MYALGIA [None]
  - FATIGUE [None]
